FAERS Safety Report 8890003 (Version 1)
Quarter: 2012Q4

REPORT INFORMATION
  Report Type: 
  Country: US (occurrence: US)
  Receive Date: 20121107
  Receipt Date: 20121107
  Transmission Date: 20130627
  Serious: Yes (Other)
  Sender: FDA-Public Use
  Company Number: US-AMGEN-USASP2012070435

PATIENT
  Age: 71 Year

DRUGS (1)
  1. PROCRIT [Suspect]
     Indication: PRODUCT USED FOR UNKNOWN INDICATION
     Dosage: 20000 unit, UNK

REACTIONS (2)
  - Gastric antral vascular ectasia [Unknown]
  - Gastric haemorrhage [Unknown]
